FAERS Safety Report 5762033-2 (Version None)
Quarter: 2008Q2

REPORT INFORMATION
  Report Type: 
  Country: None (occurrence: None)
  Receive Date: 20080603
  Receipt Date: 20080520
  Transmission Date: 20081010
  Serious: Yes (Hospitalization, Other)
  Sender: FDA-Public Use
  Company Number: 9503

PATIENT
  Age: 2 Year
  Sex: Male

DRUGS (9)
  1. METHOTREXATE [Suspect]
     Indication: JUVENILE ARTHRITIS
     Dosage: 7.5 MG WEEKLY SC
     Route: 058
     Dates: start: 20030722, end: 20040128
  2. METHOTREXATE [Suspect]
     Indication: JUVENILE ARTHRITIS
     Dosage: 10 MG WEEKLY SC
     Route: 058
     Dates: start: 20040129, end: 20040817
  3. IBUROFEN [Suspect]
     Indication: ARTHRITIS
     Dosage: 200 MG BID PO
     Route: 048
     Dates: start: 20040101
  4. PIROXICAM [Suspect]
     Indication: ARTHRITIS
     Dates: start: 20040101
  5. FELDENE MELT [Concomitant]
  6. IBUROFEN [Concomitant]
  7. PREDNISOLONE [Concomitant]
  8. IRON [Concomitant]
  9. TRIAMCINOLONE [Concomitant]

REACTIONS (8)
  - ALANINE AMINOTRANSFERASE INCREASED [None]
  - GASTROENTERITIS [None]
  - HEADACHE [None]
  - LIVER FUNCTION TEST ABNORMAL [None]
  - MUSCULOSKELETAL STIFFNESS [None]
  - PHARYNGOLARYNGEAL PAIN [None]
  - SCREAMING [None]
  - SPONDYLITIS [None]
